FAERS Safety Report 7681722-6 (Version None)
Quarter: 2011Q3

REPORT INFORMATION
  Report Type: 
  Country: None (occurrence: None)
  Receive Date: 20110812
  Receipt Date: 20110809
  Transmission Date: 20111222
  Serious: Yes (Other)
  Sender: FDA-Public Use
  Company Number: US-GENENTECH-301093

PATIENT
  Sex: Female

DRUGS (9)
  1. XOLAIR [Suspect]
     Indication: ASTHMA
     Dosage: 300 MG, Q2W
     Route: 030
     Dates: start: 20100422, end: 20100422
  2. ZYRTEC [Concomitant]
     Indication: HYPERSENSITIVITY
     Dosage: 10 MG, QHS
     Route: 048
  3. ADVAIR DISKUS 100/50 [Concomitant]
     Indication: ASTHMA
     Dosage: UNK
     Route: 055
  4. FLONASE [Concomitant]
     Indication: HYPERSENSITIVITY
     Dosage: 2 UNK, UNK
     Route: 045
  5. PREDNISONE [Concomitant]
     Indication: ASTHMA
     Dosage: 5 MG, QAM
  6. ALBUTEROL SULFATE AUTOHALER [Concomitant]
     Indication: PRODUCT USED FOR UNKNOWN INDICATION
     Route: 055
  7. ALBUTEROL SULFATE AUTOHALER [Concomitant]
     Indication: ASTHMA
  8. CALCIUM/VITAMIN D [Concomitant]
     Indication: ASTHMA
     Route: 048
  9. SINGULAIR [Concomitant]
     Indication: ASTHMA
     Dosage: 10 MG, QHS
     Route: 048

REACTIONS (8)
  - PRURITUS [None]
  - DIZZINESS [None]
  - NAUSEA [None]
  - ANAPHYLACTIC REACTION [None]
  - FLUSHING [None]
  - VOMITING [None]
  - FATIGUE [None]
  - URTICARIA [None]
